FAERS Safety Report 4789786-4 (Version None)
Quarter: 2005Q4

REPORT INFORMATION
  Report Type: 
  Country: None (occurrence: None)
  Receive Date: 20051006
  Receipt Date: 20050913
  Transmission Date: 20060501
  Serious: Yes (Other)
  Sender: FDA-Public Use
  Company Number: US-GLAXOSMITHKLINE-A0574329A

PATIENT
  Age: 32 Year
  Sex: Female
  Weight: 81.8 kg

DRUGS (2)
  1. IMITREX [Suspect]
     Indication: DRUG USE FOR UNKNOWN INDICATION
     Dosage: 100MG UNKNOWN
     Route: 048
     Dates: start: 20041030, end: 20041030
  2. PRENATAL VITAMINS [Concomitant]
     Dates: start: 20040101

REACTIONS (1)
  - BURNING SENSATION [None]
